FAERS Safety Report 9506106 (Version 1)
Quarter: 2013Q1

REPORT INFORMATION
  Report Type: Spontaneous
  Country: US (occurrence: None)
  Receive Date: 20130220
  Receipt Date: 20130220
  Transmission Date: 20140127
  Serious: Yes (Hospitalization)
  Sender: FDA-Public Use
  Company Number: 2013POI058000077

PATIENT
  Age: 75 Year
  Sex: Female
  Weight: 57 kg

DRUGS (2)
  1. OXYCODONE HCL [Suspect]
     Indication: MUSCLE SPASMS
     Dosage: EVERY 4-6 HOUR PRN
     Route: 048
     Dates: start: 201109
  2. BACLOFEN [Suspect]
     Indication: MUSCLE SPASMS
     Dosage: 10 MG 3 IN 1 D
     Route: 048
     Dates: start: 20120825

REACTIONS (2)
  - Drug interaction [None]
  - Syncope [None]
